FAERS Safety Report 4696905-7 (Version None)
Quarter: 2005Q2

REPORT INFORMATION
  Report Type: 
  Country: None (occurrence: None)
  Receive Date: 20050622
  Receipt Date: 20050617
  Transmission Date: 20051028
  Serious: Yes (Other)
  Sender: FDA-Public Use
  Company Number: US-JNJFOC-20050605089

PATIENT
  Sex: Female

DRUGS (2)
  1. CONCERTA [Suspect]
     Indication: DRUG USE FOR UNKNOWN INDICATION
     Route: 049
  2. CRESTOR [Concomitant]

REACTIONS (4)
  - DEPRESSION [None]
  - HEART RATE INCREASED [None]
  - HYPOAESTHESIA [None]
  - SUICIDAL IDEATION [None]
